FAERS Safety Report 8523793 (Version 2)
Quarter: 2012Q4

REPORT INFORMATION
  Report Type: 
  Country: TR (occurrence: TR)
  Receive Date: 20120420
  Receipt Date: 20121210
  Transmission Date: 20130627
  Serious: Yes (Other)
  Sender: FDA-Public Use
  Company Number: TR-JNJFOC-20120401535

PATIENT
  Age: 41 Year
  Sex: Female

DRUGS (5)
  1. REMICADE [Suspect]
     Indication: RHEUMATOID ARTHRITIS
     Dosage: first infusion
     Route: 042
     Dates: start: 20120326
  2. REMICADE [Suspect]
     Indication: RHEUMATOID ARTHRITIS
     Dosage: second infusion
     Route: 042
     Dates: start: 20120410
  3. REMICADE [Suspect]
     Indication: RHEUMATOID ARTHRITIS
     Dosage: third infusion
     Route: 042
     Dates: start: 20120507
  4. REMICADE [Suspect]
     Indication: RHEUMATOID ARTHRITIS
     Dosage: 4th infusion
     Route: 042
     Dates: start: 20120704, end: 201208
  5. MELOX [Concomitant]
     Route: 048

REACTIONS (7)
  - Hypoaesthesia [Not Recovered/Not Resolved]
  - Tuberculosis [Not Recovered/Not Resolved]
  - Nodule [Not Recovered/Not Resolved]
  - Decreased appetite [Not Recovered/Not Resolved]
  - Gingival swelling [Not Recovered/Not Resolved]
  - Headache [Not Recovered/Not Resolved]
  - Skin exfoliation [Not Recovered/Not Resolved]
